FAERS Safety Report 22104929 (Version 1)
Quarter: 2023Q1

REPORT INFORMATION
  Report Type: Spontaneous
  Country: US (occurrence: US)
  Receive Date: 20230316
  Receipt Date: 20230316
  Transmission Date: 20230417
  Serious: No
  Sender: FDA-Public Use
  Company Number: US-IDORSIA-003937-2023-US

PATIENT
  Age: 55 Year
  Sex: Female

DRUGS (1)
  1. QUVIVIQ [Suspect]
     Active Substance: DARIDOREXANT
     Indication: Insomnia
     Dosage: 50 MG, QD
     Route: 048
     Dates: start: 20230306

REACTIONS (4)
  - Insomnia [Unknown]
  - Dry mouth [Unknown]
  - Nocturia [Unknown]
  - Headache [Unknown]

NARRATIVE: CASE EVENT DATE: 20230306
